FAERS Safety Report 9995008 (Version 1)
Quarter: 2014Q1

REPORT INFORMATION
  Report Type: Spontaneous
  Country: CH (occurrence: None)
  Receive Date: 20140306
  Receipt Date: 20140306
  Transmission Date: 20141002
  Serious: Yes (Hospitalization)
  Sender: FDA-Public Use
  Company Number: 20140096

PATIENT
  Age: 88 Year
  Sex: Male

DRUGS (7)
  1. FERINJECT [Suspect]
     Indication: IRON DEFICIENCY
     Dosage: 3 VIALS 1 IN 1 TOTAL
     Route: 041
     Dates: start: 20140115, end: 20140115
  2. CARDENSIEL [Concomitant]
  3. DIFFU-K [Concomitant]
  4. EUPANTOL [Concomitant]
  5. LASILIX [Concomitant]
  6. PREVISCAN [Concomitant]
  7. TRIATEC [Concomitant]

REACTIONS (8)
  - Hyperthermia [None]
  - Chills [None]
  - Dyspnoea [None]
  - C-reactive protein increased [None]
  - Leukocytosis [None]
  - Neutrophil count [None]
  - Pleural effusion [None]
  - Lung disorder [None]
